FAERS Safety Report 25626287 (Version 2)
Quarter: 2025Q3

REPORT INFORMATION
  Report Type: Spontaneous
  Country: CN (occurrence: CN)
  Receive Date: 20250731
  Receipt Date: 20250811
  Transmission Date: 20251020
  Serious: Yes (Hospitalization)
  Sender: RIGEL PHARMACEUTICALS
  Company Number: CN-CSTONE PHARMACEUTICALS (SUZHOU) CO., LTD.-2025CN00513

PATIENT
  Age: 39 Year
  Sex: Female

DRUGS (3)
  1. GAVRETO [Suspect]
     Active Substance: PRALSETINIB
     Indication: Lung neoplasm malignant
     Dosage: 400 MILLIGRAM, QD
     Route: 048
     Dates: start: 20250609, end: 20250703
  2. GAVRETO [Suspect]
     Active Substance: PRALSETINIB
     Dosage: 300 MILLIGRAM, QD
     Route: 048
     Dates: start: 20250704
  3. TONG GUAN TENG [Concomitant]
     Indication: Neoplasm malignant
     Route: 048

REACTIONS (9)
  - Furuncle [Recovering/Resolving]
  - Menstruation delayed [Unknown]
  - Alopecia [Not Recovered/Not Resolved]
  - Acne [Unknown]
  - Haemorrhoids [Unknown]
  - Product packaging quantity issue [Unknown]
  - Suspected counterfeit product [Unknown]
  - Constipation [Not Recovered/Not Resolved]
  - Dysgeusia [Recovering/Resolving]

NARRATIVE: CASE EVENT DATE: 20250704
